FAERS Safety Report 5092771-9 (Version None)
Quarter: 2006Q3

REPORT INFORMATION
  Report Type: 
  Country: None (occurrence: None)
  Receive Date: 20060825
  Receipt Date: 20060807
  Transmission Date: 20061208
  Serious: Yes (Other)
  Sender: FDA-Public Use
  Company Number: 2006CL000725

PATIENT
  Age: 46 Year
  Sex: Female
  Weight: 101.6057 kg

DRUGS (10)
  1. SYMLIN [Suspect]
     Indication: DIABETES MELLITUS INSULIN-DEPENDENT
     Dosage: SEE IMAGE
     Route: 058
     Dates: start: 20060606, end: 20060719
  2. SYMLIN [Suspect]
     Indication: DIABETES MELLITUS INSULIN-DEPENDENT
     Dosage: SEE IMAGE
     Route: 058
     Dates: start: 20060719
  3. NOVOLOG [Suspect]
     Indication: DIABETES MELLITUS INSULIN-DEPENDENT
     Dosage: PRN;SC
     Route: 058
     Dates: start: 20040101
  4. RAMIPRIL [Concomitant]
  5. ASPIRIN [Concomitant]
  6. CLOPIDOGREL [Concomitant]
  7. LANSOPRAZOLE [Concomitant]
  8. ESCITALOPRAM [Concomitant]
  9. MONTELUKAST [Concomitant]
  10. FLUTICASONE PROPIONATE [Concomitant]

REACTIONS (3)
  - BLOOD GLUCOSE INCREASED [None]
  - HYPOGLYCAEMIC SEIZURE [None]
  - SYNCOPE [None]
